FAERS Safety Report 8230595-1 (Version None)
Quarter: 2012Q1

REPORT INFORMATION
  Report Type: 
  Country: None (occurrence: None)
  Receive Date: 20120323
  Receipt Date: 20120316
  Transmission Date: 20120608
  Serious: Yes (Hospitalization, Other)
  Sender: FDA-Public Use
  Company Number: TW-JNJFOC-20120310011

PATIENT
  Age: 84 Year
  Sex: Female
  Weight: 42 kg

DRUGS (2)
  1. RISPERIDONE [Suspect]
     Indication: INSOMNIA
     Route: 065
  2. ULTRACET [Suspect]
     Indication: PAIN MANAGEMENT
     Route: 048

REACTIONS (10)
  - PNEUMONIA ASPIRATION [None]
  - LOSS OF CONSCIOUSNESS [None]
  - CONVULSION [None]
  - URINARY RETENTION [None]
  - NEUROGENIC BLADDER [None]
  - TOXIC ENCEPHALOPATHY [None]
  - VOMITING [None]
  - DELIRIUM [None]
  - INSOMNIA [None]
  - INFARCTION [None]
